FAERS Safety Report 8992674 (Version 2)
Quarter: 2013Q2

REPORT INFORMATION
  Report Type: Report from Study
  Country: JP (occurrence: JP)
  Receive Date: 20130101
  Receipt Date: 20130607
  Transmission Date: 20140414
  Serious: Yes (Life-Threatening)
  Sender: FDA-Public Use
  Company Number: JP-009507513-2012SP000598

PATIENT
  Age: 46 Year
  Sex: Female
  Weight: 79 kg

DRUGS (9)
  1. REBETOL [Suspect]
     Indication: CHRONIC HEPATITIS C
     Dosage: 200 MG IN THE MORNING AND 400 MG IN THE EVENING
     Route: 048
     Dates: start: 20110815, end: 20111011
  2. FERON [Suspect]
     Indication: CHRONIC HEPATITIS C
     Dosage: 6 MILLION-BILLION UNIT, QD
     Route: 041
     Dates: start: 20110815, end: 20111010
  3. URSO [Concomitant]
     Indication: CHRONIC HEPATITIS C
     Dosage: 100 MG, TID
     Route: 048
  4. OLMETEC [Concomitant]
     Indication: HYPERTENSION
     Dosage: 20 MG, QD
     Route: 048
  5. NORVASC [Concomitant]
     Indication: HYPERTENSION
     Dosage: 5 MG, QD
     Route: 048
  6. MARZULENE-S [Concomitant]
     Indication: PROPHYLAXIS
     Dosage: 1 DF, TID
     Route: 048
  7. LOXOPROFEN [Concomitant]
     Indication: OSTEOARTHRITIS
     Dosage: 60 MG, BID
     Route: 048
  8. ROHYPNOL [Concomitant]
     Indication: SCHIZOPHRENIA
     Dosage: 1 MG, QD
     Route: 048
  9. ABILIFY [Concomitant]
     Indication: SCHIZOPHRENIA
     Dosage: 6 MG, TID
     Route: 048

REACTIONS (4)
  - Bacteraemia [Recovering/Resolving]
  - Cellulitis [Recovering/Resolving]
  - Pyrexia [Unknown]
  - Pneumonia [Recovered/Resolved]
